FAERS Safety Report 11086640 (Version 1)
Quarter: 2015Q2

REPORT INFORMATION
  Report Type: Spontaneous
  Country: CA (occurrence: CA)
  Receive Date: 20150504
  Receipt Date: 20150504
  Transmission Date: 20150821
  Serious: Yes (Other)
  Sender: FDA-Public Use
  Company Number: CA-ROCHE-1572010

PATIENT
  Age: 71 Year
  Sex: Female

DRUGS (6)
  1. AVASTIN [Suspect]
     Active Substance: BEVACIZUMAB
     Indication: OVARIAN CANCER
  2. TAXOL [Concomitant]
     Active Substance: PACLITAXEL
     Route: 065
     Dates: start: 201406, end: 201409
  3. PANTOPRAZOLE [Concomitant]
     Active Substance: PANTOPRAZOLE SODIUM
  4. CARBOPLATIN. [Concomitant]
     Active Substance: CARBOPLATIN
     Route: 065
     Dates: start: 201406, end: 201409
  5. AVASTIN [Suspect]
     Active Substance: BEVACIZUMAB
     Indication: UTERINE CANCER
     Route: 042
     Dates: start: 201406
  6. SERTRALINE [Concomitant]
     Active Substance: SERTRALINE HYDROCHLORIDE

REACTIONS (3)
  - Blood magnesium decreased [Recovered/Resolved]
  - Off label use [Unknown]
  - Depression [Unknown]

NARRATIVE: CASE EVENT DATE: 201407
